FAERS Safety Report 18610961 (Version 1)
Quarter: 2020Q4

REPORT INFORMATION
  Report Type: Spontaneous
  Country: US (occurrence: US)
  Receive Date: 20201214
  Receipt Date: 20201214
  Transmission Date: 20210114
  Serious: Yes (Other)
  Sender: FDA-Public Use
  Company Number: US-ALKEM LABORATORIES LIMITED-US-ALKEM-2019-10445

PATIENT
  Age: 15 Year
  Sex: Male

DRUGS (8)
  1. RIFAMPIN. [Suspect]
     Active Substance: RIFAMPIN
     Indication: ANTIBIOTIC PROPHYLAXIS
  2. PYRAZINAMID [Suspect]
     Active Substance: PYRAZINAMIDE
     Indication: ANTIBIOTIC PROPHYLAXIS
  3. ISONIAZID. [Suspect]
     Active Substance: ISONIAZID
     Indication: HISTIOCYTIC NECROTISING LYMPHADENITIS
     Dosage: UNK
     Route: 065
  4. RIFAMPIN. [Suspect]
     Active Substance: RIFAMPIN
     Indication: HISTIOCYTIC NECROTISING LYMPHADENITIS
     Dosage: UNK
     Route: 065
  5. ISONIAZID. [Suspect]
     Active Substance: ISONIAZID
     Indication: ANTIBIOTIC PROPHYLAXIS
  6. ETHAMBUTOL [Suspect]
     Active Substance: ETHAMBUTOL HYDROCHLORIDE
     Indication: ANTIBIOTIC PROPHYLAXIS
  7. ETHAMBUTOL [Suspect]
     Active Substance: ETHAMBUTOL HYDROCHLORIDE
     Indication: HISTIOCYTIC NECROTISING LYMPHADENITIS
     Dosage: UNK
     Route: 065
  8. PYRAZINAMID [Suspect]
     Active Substance: PYRAZINAMIDE
     Indication: HISTIOCYTIC NECROTISING LYMPHADENITIS
     Dosage: UNK
     Route: 065

REACTIONS (1)
  - Drug ineffective [Unknown]
